FAERS Safety Report 13629852 (Version 1)
Quarter: 2017Q2

REPORT INFORMATION
  Report Type: Spontaneous
  Country: IT (occurrence: IT)
  Receive Date: 20170608
  Receipt Date: 20170608
  Transmission Date: 20170830
  Serious: Yes (Other)
  Sender: FDA-Public Use
  Company Number: IT-ELI_LILLY_AND_COMPANY-IT201705011457

PATIENT
  Age: 84 Year
  Sex: Female

DRUGS (1)
  1. FORSTEO 250UG/ML [Suspect]
     Active Substance: TERIPARATIDE
     Indication: OSTEOPOROSIS
     Dosage: UNK, UNKNOWN
     Route: 065
     Dates: start: 201603

REACTIONS (6)
  - Cardiac disorder [Unknown]
  - Fatigue [Unknown]
  - Dyspnoea [Unknown]
  - Peripheral swelling [Unknown]
  - Joint swelling [Unknown]
  - Weight increased [Unknown]

NARRATIVE: CASE EVENT DATE: 201705
